FAERS Safety Report 9766631 (Version 1)
Quarter: 2013Q4

REPORT INFORMATION
  Report Type: Spontaneous
  Country: US (occurrence: US)
  Receive Date: 20131217
  Receipt Date: 20131217
  Transmission Date: 20140711
  Serious: No
  Sender: FDA-Public Use
  Company Number: US-GLAXOSMITHKLINE-A1029311A

PATIENT
  Age: 63 Year
  Sex: Male
  Weight: 68.2 kg

DRUGS (6)
  1. VOTRIENT [Suspect]
     Indication: PRODUCT USED FOR UNKNOWN INDICATION
     Dosage: 800MG PER DAY
     Route: 048
  2. IMODIUM [Concomitant]
  3. HYDROXYCHLOROQUINE [Concomitant]
  4. METOPROLOL TARTRATE [Concomitant]
  5. MOBIC [Concomitant]
  6. FISH OIL [Concomitant]

REACTIONS (5)
  - Fatigue [Unknown]
  - Weight decreased [Unknown]
  - Diarrhoea [Unknown]
  - Flatulence [Unknown]
  - Dysgeusia [Unknown]
